FAERS Safety Report 7556540-X (Version None)
Quarter: 2011Q2

REPORT INFORMATION
  Report Type: 
  Country: None (occurrence: None)
  Receive Date: 20110616
  Receipt Date: 20110616
  Transmission Date: 20111010
  Serious: No
  Sender: FDA-Public Use
  Company Number: None

PATIENT
  Age: 48 Year
  Sex: Female

DRUGS (2)
  1. SULFAMETHOXAZOLE AND TRIMETHOPRIM [Suspect]
     Dates: start: 20100119, end: 20100204
  2. LEVOFLOXACIN [Suspect]
     Dates: start: 20100410, end: 20100418

REACTIONS (6)
  - ASPARTATE AMINOTRANSFERASE INCREASED [None]
  - ALANINE AMINOTRANSFERASE INCREASED [None]
  - CELLULITIS [None]
  - LIVER INJURY [None]
  - AUTOIMMUNE HEPATITIS [None]
  - BIOPSY LIVER ABNORMAL [None]
